APPROVED DRUG PRODUCT: GOMEKLI
Active Ingredient: MIRDAMETINIB
Strength: 1MG
Dosage Form/Route: CAPSULE;ORAL
Application: N219389 | Product #001
Applicant: SPRINGWORKS THERAPEUTICS INC
Approved: Feb 11, 2025 | RLD: Yes | RS: No | Type: RX

PATENTS:
Patent 12295925 | Expires: Feb 17, 2041
Patent 11883375 | Expires: Mar 16, 2043
Patent 12324791 | Expires: Mar 16, 2043
Patent 12011424 | Expires: Feb 17, 2041
Patent 11839595 | Expires: Mar 16, 2043
Patent 11819487 | Expires: Feb 17, 2041
Patent 11806322 | Expires: Apr 9, 2043
Patent 11806321 | Expires: Feb 17, 2041
Patent 11453641 | Expires: Feb 17, 2041
Patent 12263146 | Expires: Feb 17, 2041
Patent 12257215 | Expires: Mar 16, 2043
Patent 12275688 | Expires: Feb 17, 2041
Patent 12390430 | Expires: Oct 10, 2044
Patent 12383517 | Expires: Mar 15, 2044
Patent 12220390 | Expires: Mar 16, 2043
Patent 12037306 | Expires: Feb 17, 2041
Patent 12029711 | Expires: Mar 15, 2044
Patent 11066358 | Expires: Feb 17, 2041
Patent 11084780 | Expires: Feb 17, 2041

EXCLUSIVITY:
Code: NCE | Date: Feb 11, 2030
Code: ODE-488 | Date: Feb 11, 2032